FAERS Safety Report 23814904 (Version 2)
Quarter: 2025Q1

REPORT INFORMATION
  Report Type: Spontaneous
  Country: US (occurrence: US)
  Receive Date: 20240503
  Receipt Date: 20250305
  Transmission Date: 20250408
  Serious: No
  Sender: ALNYLAM PHARMACEUTICALS
  Company Number: US-ALNYLAM PHARMACEUTICALS, INC.-ALN-2024-002360

PATIENT

DRUGS (3)
  1. AMVUTTRA [Suspect]
     Active Substance: VUTRISIRAN
     Indication: Hereditary neuropathic amyloidosis
     Dosage: UNK, Q3M
     Route: 065
     Dates: start: 20230516, end: 20230516
  2. VITAMIN A [Concomitant]
     Active Substance: VITAMIN A
     Indication: Supplementation therapy
     Route: 065
  3. OCUVITE [Concomitant]
     Active Substance: VITAMINS
     Indication: Product used for unknown indication
     Dosage: 1 DOSAGE FORM, WEEKLY
     Route: 065
     Dates: start: 2023

REACTIONS (8)
  - Vision blurred [Recovering/Resolving]
  - Vitamin A decreased [Unknown]
  - Eye pain [Unknown]
  - Diplopia [Not Recovered/Not Resolved]
  - Photophobia [Unknown]
  - Asthenopia [Recovering/Resolving]
  - Strabismus [Recovering/Resolving]
  - Reading disorder [Unknown]
